FAERS Safety Report 4894516-1 (Version None)
Quarter: 2006Q1

REPORT INFORMATION
  Report Type: 
  Country: None (occurrence: None)
  Receive Date: 20060127
  Receipt Date: 20050906
  Transmission Date: 20060701
  Serious: Yes (Death, Life-Threatening, Hospitalization, Disabling, Other)
  Sender: FDA-Public Use
  Company Number: US-ABBOTT-05P-163-0310571-02

PATIENT
  Sex: Male
  Weight: 84 kg

DRUGS (30)
  1. ZEMPLAR [Suspect]
     Indication: HYPERPARATHYROIDISM SECONDARY
     Route: 042
     Dates: start: 20040805, end: 20050905
  2. EPOETIN ALFA [Concomitant]
     Indication: NEPHROGENIC ANAEMIA
     Dates: start: 20040621, end: 20040811
  3. EPOETIN ALFA [Concomitant]
     Dates: start: 20040812, end: 20041102
  4. EPOETIN ALFA [Concomitant]
     Dates: start: 20041103, end: 20041125
  5. EPOETIN ALFA [Concomitant]
     Dates: start: 20041126, end: 20050105
  6. EPOETIN ALFA [Concomitant]
     Dates: start: 20050118, end: 20050329
  7. EPOETIN ALFA [Concomitant]
     Dates: start: 20050330, end: 20050502
  8. EPOETIN ALFA [Concomitant]
     Dates: start: 20050503, end: 20050508
  9. EPOETIN ALFA [Concomitant]
     Dates: start: 20050509
  10. EPOETIN ALFA [Concomitant]
     Dates: start: 20050728
  11. EPOETIN ALFA [Concomitant]
     Dates: start: 20050106, end: 20050117
  12. NEPHROVITE [Concomitant]
     Indication: VITAMIN SUPPLEMENTATION
     Dates: start: 20040302, end: 20051015
  13. ESOMEPRAZOLE [Concomitant]
     Indication: PEPTIC ULCER
     Dates: start: 20040302, end: 20051015
  14. ESOMEPRAZOLE [Concomitant]
     Indication: PROPHYLAXIS AGAINST GASTROINTESTINAL ULCER
  15. ISOSORBIDE MONONITRATE [Concomitant]
     Indication: CORONARY ARTERY DISEASE
     Dates: start: 20040302, end: 20051015
  16. FLOMAX [Concomitant]
     Indication: BENIGN PROSTATIC HYPERPLASIA
     Dates: start: 20040302, end: 20051015
  17. ATORVASTATIN CALCIUM [Concomitant]
     Indication: HYPERCHOLESTEROLAEMIA
     Dates: start: 20040302, end: 20051015
  18. GABAPENTIN [Concomitant]
     Indication: NEUROPATHY
     Dates: start: 20040617, end: 20051015
  19. ZOLPIDEM TARTRATE [Concomitant]
     Indication: INSOMNIA
     Dates: start: 20040803, end: 20051015
  20. ZOLPIDEM TARTRATE [Concomitant]
     Dates: start: 20040420, end: 20040803
  21. METOPROLOL SUCCINATE [Concomitant]
     Indication: ATRIAL FLUTTER
     Dates: start: 20040914, end: 20051015
  22. THIAMAZOLE [Concomitant]
     Indication: HYPERTHYROIDISM
     Dates: start: 20040914, end: 20050518
  23. THIAMAZOLE [Concomitant]
     Dates: start: 20050519
  24. CLOPIDOGREL BISULFATE [Concomitant]
     Indication: ATRIAL FIBRILLATION
     Dates: start: 20041026, end: 20051015
  25. LORATADINE [Concomitant]
     Indication: NASAL DECONGESTION THERAPY
     Dates: start: 20041126, end: 20051015
  26. ISOPHANE INSULIN [Concomitant]
     Indication: DIABETES MELLITUS
     Dates: start: 20050106
  27. FOLIC ACID [Concomitant]
     Indication: CORONARY ARTERY DISEASE
     Dates: start: 20050330, end: 20051015
  28. TRENTAL [Concomitant]
     Indication: INTERMITTENT CLAUDICATION
     Dates: start: 20050727, end: 20051015
  29. MUSE [Concomitant]
     Indication: ERECTILE DYSFUNCTION
     Dates: start: 20050831, end: 20051015
  30. MUSE [Concomitant]

REACTIONS (28)
  - AORTIC VALVE STENOSIS [None]
  - ATELECTASIS [None]
  - CANDIDIASIS [None]
  - CARDIAC ARREST [None]
  - CEREBRAL ATROPHY [None]
  - CEREBRAL ISCHAEMIA [None]
  - CORONARY ARTERY DISEASE [None]
  - CORONARY ARTERY STENOSIS [None]
  - DELIRIUM [None]
  - DEPRESSION [None]
  - DIALYSIS [None]
  - DIFFICULTY IN WALKING [None]
  - DISORIENTATION [None]
  - DYSPHAGIA [None]
  - ENTEROBACTER INFECTION [None]
  - FALL [None]
  - MENTAL STATUS CHANGES [None]
  - MITRAL VALVE STENOSIS [None]
  - PERICARDIAL EFFUSION [None]
  - PLEURAL EFFUSION [None]
  - PNEUMONIA [None]
  - PNEUMONIA ASPIRATION [None]
  - POST PROCEDURAL COMPLICATION [None]
  - PULMONARY HYPERTENSION [None]
  - RESPIRATORY ARREST [None]
  - SHOCK [None]
  - SPUTUM CULTURE POSITIVE [None]
  - VENTRICULAR HYPERTROPHY [None]
